FAERS Safety Report 13650317 (Version 20)
Quarter: 2018Q3

REPORT INFORMATION
  Report Type: Report from Study
  Country: CA (occurrence: CA)
  Receive Date: 20170614
  Receipt Date: 20180709
  Transmission Date: 20181010
  Serious: Yes (Death, Hospitalization, Other)
  Sender: FDA-Public Use
  Company Number: PHHY2017CA070897

PATIENT
  Age: 81 Year
  Sex: Male

DRUGS (4)
  1. SANDOSTATIN LAR DEPOT [Suspect]
     Active Substance: OCTREOTIDE ACETATE
     Indication: NEUROENDOCRINE TUMOUR
     Dosage: 60 MG, Q2W
     Route: 030
     Dates: start: 20140605
  2. SANDOSTATIN LAR DEPOT [Suspect]
     Active Substance: OCTREOTIDE ACETATE
     Dosage: 60 MG, QMO (EVRY 4 WEEKS)
     Route: 030
  3. SANDOSTATIN LAR DEPOT [Suspect]
     Active Substance: OCTREOTIDE ACETATE
     Dosage: 60 MG, Q2W (EVERY 2 WEEKS)
     Route: 030
     Dates: start: 20160704
  4. SANDOSTATIN LAR DEPOT [Suspect]
     Active Substance: OCTREOTIDE ACETATE
     Dosage: 60 MG, Q2W (EVERY 2 WEEKS)
     Route: 030

REACTIONS (26)
  - Skin discolouration [Unknown]
  - Vomiting [Unknown]
  - Fatigue [Unknown]
  - Inappropriate schedule of drug administration [Unknown]
  - Blood pressure systolic increased [Unknown]
  - Unresponsive to stimuli [Recovered/Resolved]
  - Eye movement disorder [Unknown]
  - Vomiting [Recovered/Resolved]
  - Nausea [Unknown]
  - Atrial fibrillation [Unknown]
  - Eye disorder [Unknown]
  - Blood pressure diastolic decreased [Unknown]
  - Retching [Unknown]
  - Death [Fatal]
  - Loss of consciousness [Unknown]
  - Gait disturbance [Unknown]
  - Nausea [Recovered/Resolved]
  - Visual impairment [Unknown]
  - Diarrhoea [Recovered/Resolved]
  - Syncope [Unknown]
  - Haemoglobin decreased [Unknown]
  - Dizziness [Unknown]
  - Cystitis [Unknown]
  - Cyanosis [Unknown]
  - Erythema [Unknown]
  - Headache [Unknown]

NARRATIVE: CASE EVENT DATE: 20170510
